FAERS Safety Report 7038980-0 (Version None)
Quarter: 2010Q4

REPORT INFORMATION
  Report Type: 
  Country: None (occurrence: None)
  Receive Date: 20101012
  Receipt Date: 20100929
  Transmission Date: 20110411
  Serious: Yes (Life-Threatening, Hospitalization, Other)
  Sender: FDA-Public Use
  Company Number: DE-PAR PHARMACEUTICAL, INC-2010SCPR002144

PATIENT
  Age: 80 Year
  Sex: Female

DRUGS (2)
  1. IBUPROFEN [Suspect]
     Indication: PRODUCT USED FOR UNKNOWN INDICATION
     Dosage: 1800 MG, QD
     Route: 048
     Dates: start: 20091211, end: 20100303
  2. IBUPROFEN [Suspect]
     Dosage: 1200 MG, QD
     Route: 048
     Dates: start: 20100304, end: 20100806

REACTIONS (1)
  - RENAL FAILURE ACUTE [None]
